FAERS Safety Report 9972781 (Version 5)
Quarter: 2014Q2

REPORT INFORMATION
  Report Type: Spontaneous
  Country: JP (occurrence: JP)
  Receive Date: 20140306
  Receipt Date: 20140429
  Transmission Date: 20141212
  Serious: Yes (Other)
  Sender: FDA-Public Use
  Company Number: JP-JNJFOC-20140301771

PATIENT
  Age: 80 Year
  Sex: Female

DRUGS (7)
  1. TRAMCET [Suspect]
     Indication: PAIN
     Dosage: 3 TABLETS PER DAY
     Route: 048
     Dates: start: 201307, end: 20140226
  2. PARIET [Concomitant]
     Indication: PRODUCT USED FOR UNKNOWN INDICATION
     Route: 048
  3. AMLODIN [Concomitant]
     Route: 048
  4. CANDESARTAN CILEXETIL W/HYDROCHLOROTHIAZIDE [Concomitant]
     Route: 048
  5. MEVALOTIN [Concomitant]
     Route: 048
  6. RESMIT [Concomitant]
     Route: 048
  7. ISOSORBIDE DINITRATE [Concomitant]
     Route: 062

REACTIONS (3)
  - Anaemia [Unknown]
  - Gastric ulcer [Recovered/Resolved]
  - Duodenal ulcer [Recovered/Resolved]
